FAERS Safety Report 8363221-1 (Version None)
Quarter: 2012Q2

REPORT INFORMATION
  Report Type: 
  Country: None (occurrence: None)
  Receive Date: 20120516
  Receipt Date: 20120511
  Transmission Date: 20120825
  Serious: Yes (Life-Threatening)
  Sender: FDA-Public Use
  Company Number: GB-PFIZER INC-2012115062

PATIENT
  Age: 47 Year
  Sex: Male

DRUGS (8)
  1. ACETAMINOPHEN [Concomitant]
     Dosage: UNK
  2. RAMIPRIL [Concomitant]
     Dosage: UNK
  3. BENDROFLUMETHIAZIDE [Concomitant]
     Dosage: UNK
  4. GABAPENTIN [Suspect]
     Dosage: 600 MG, 2X/DAY
  5. GABAPENTIN [Suspect]
     Dosage: 300 MG DAILY
  6. BISOPROLOL FUMARATE [Concomitant]
     Dosage: UNK
  7. LASOPRAZOLE [Concomitant]
     Dosage: UNK
  8. GABAPENTIN [Suspect]
     Indication: NECK PAIN
     Dosage: UNK
     Dates: start: 20111001

REACTIONS (5)
  - SLEEP DISORDER [None]
  - AMNESIA [None]
  - SUICIDAL IDEATION [None]
  - ANXIETY [None]
  - DEPRESSION [None]
